FAERS Safety Report 18442546 (Version 1)
Quarter: 2020Q4

REPORT INFORMATION
  Report Type: Spontaneous
  Country: IT (occurrence: IT)
  Receive Date: 20201029
  Receipt Date: 20201029
  Transmission Date: 20210114
  Serious: Yes (Death, Other)
  Sender: FDA-Public Use
  Company Number: PHBS2004IT10460

PATIENT
  Age: 45 Year
  Sex: Female

DRUGS (43)
  1. NYSTATIN. [Suspect]
     Active Substance: NYSTATIN
     Indication: CYSTITIS
  2. CALCITRIOL. [Concomitant]
     Active Substance: CALCITRIOL
     Indication: PRODUCT USED FOR UNKNOWN INDICATION
     Dosage: UNK
     Route: 065
     Dates: start: 20020927
  3. MAGNESIUM HYDROXIDE. [Concomitant]
     Active Substance: MAGNESIUM HYDROXIDE
     Indication: PRODUCT USED FOR UNKNOWN INDICATION
     Dosage: UNK
     Route: 065
     Dates: start: 20020927
  4. POVIDONE-IODINE. [Concomitant]
     Active Substance: POVIDONE-IODINE
     Indication: PRODUCT USED FOR UNKNOWN INDICATION
     Dosage: UNK
     Route: 065
     Dates: start: 20021106
  5. RIFAMYCIN [Concomitant]
     Active Substance: RIFAMYCIN
     Indication: PRODUCT USED FOR UNKNOWN INDICATION
     Dosage: UNK
     Route: 065
     Dates: start: 20021104, end: 20021106
  6. PIPERACILLIN. [Concomitant]
     Active Substance: PIPERACILLIN SODIUM
     Indication: PRODUCT USED FOR UNKNOWN INDICATION
     Dosage: UNK
     Route: 065
     Dates: start: 20021102, end: 20021104
  7. CORTISONE ACETATE. [Suspect]
     Active Substance: CORTISONE ACETATE
     Indication: PRODUCT USED FOR UNKNOWN INDICATION
     Dosage: 25 MG, BID
     Route: 065
     Dates: start: 20020927, end: 20021103
  8. CALCIUM CARBONATE. [Suspect]
     Active Substance: CALCIUM CARBONATE
     Indication: AGITATION
     Dosage: 1 G, QD
     Route: 048
     Dates: start: 20020927, end: 20020927
  9. CEFACLOR. [Suspect]
     Active Substance: CEFACLOR
     Indication: CYSTITIS
     Dosage: 0.5 UG, QD
     Route: 065
     Dates: start: 20020927, end: 20021106
  10. BETAMETHASONE. [Concomitant]
     Active Substance: BETAMETHASONE
     Indication: PRODUCT USED FOR UNKNOWN INDICATION
     Dosage: UNK
     Route: 065
     Dates: start: 20020927
  11. BETAMETHASONE. [Concomitant]
     Active Substance: BETAMETHASONE
     Dosage: 8 MG
     Route: 065
     Dates: start: 20021106, end: 20021110
  12. CHLORPHENAMINE [Concomitant]
     Active Substance: CHLORPHENIRAMINE MALEATE
     Indication: PRODUCT USED FOR UNKNOWN INDICATION
     Dosage: UNK
     Route: 042
     Dates: start: 20021106
  13. FUROSEMIDE. [Suspect]
     Active Substance: FUROSEMIDE
     Indication: OLIGURIA
     Dosage: UNK
     Route: 042
     Dates: start: 20021027, end: 20021106
  14. METOCLOPRAMIDE. [Suspect]
     Active Substance: METOCLOPRAMIDE
     Indication: PRODUCT USED FOR UNKNOWN INDICATION
     Dosage: UNK
     Route: 065
     Dates: start: 20020927
  15. LEVOFLOXACIN. [Suspect]
     Active Substance: LEVOFLOXACIN
     Indication: PNEUMONIA
     Dosage: 500 MILLIGRAM, QD
     Route: 048
     Dates: start: 20021004, end: 20021019
  16. FLUDROCORTISONE [Suspect]
     Active Substance: FLUDROCORTISONE
     Indication: PRODUCT USED FOR UNKNOWN INDICATION
     Dosage: UNK
     Route: 065
     Dates: start: 20020927, end: 20021024
  17. CALCIUM GLUCONATE. [Suspect]
     Active Substance: CALCIUM GLUCONATE
     Indication: PRODUCT USED FOR UNKNOWN INDICATION
     Dosage: 1 G
     Route: 065
     Dates: start: 20020927, end: 20021110
  18. OMEPRAZOLE. [Suspect]
     Active Substance: OMEPRAZOLE
     Indication: PRODUCT USED FOR UNKNOWN INDICATION
     Dosage: 20 MG, QD
     Route: 048
     Dates: start: 20020927, end: 20021103
  19. AMINO ACIDS [Concomitant]
     Active Substance: AMINO ACIDS, SOURCE UNSPECIFIED
     Indication: PRODUCT USED FOR UNKNOWN INDICATION
     Dosage: UNK
     Route: 065
     Dates: start: 20021027
  20. CALCIUM CARBONATE. [Suspect]
     Active Substance: CALCIUM CARBONATE
     Dosage: UNK
     Route: 048
     Dates: start: 20021004
  21. CANRENOIC ACID [Suspect]
     Active Substance: CANRENOIC ACID
     Indication: RENAL IMPAIRMENT
     Dosage: UNK
     Route: 048
     Dates: start: 20021004, end: 20021015
  22. GLUCOSE [Concomitant]
     Active Substance: DEXTROSE
     Indication: PRODUCT USED FOR UNKNOWN INDICATION
     Dosage: UNK
     Route: 041
     Dates: start: 20021106
  23. DIAZEPAM. [Suspect]
     Active Substance: DIAZEPAM
     Indication: HALLUCINATION
  24. DIAZEMULS [Suspect]
     Active Substance: DIAZEPAM
     Indication: HALLUCINATION
  25. CLAVUMOX [Suspect]
     Active Substance: AMOXICILLIN\CLAVULANATE POTASSIUM
     Indication: PNEUMONIA
     Dosage: 1200 MG, TID
     Route: 042
     Dates: start: 20021004, end: 20021019
  26. HALOPERIDOL. [Suspect]
     Active Substance: HALOPERIDOL
     Indication: AGITATION
     Dosage: UNK
     Route: 065
     Dates: start: 20021009, end: 20021104
  27. ALUMINIUM HYDROXIDE\MAGNESIUM CARBONATE [Suspect]
     Active Substance: ALUMINUM HYDROXIDE\MAGNESIUM CARBONATE
     Indication: PRODUCT USED FOR UNKNOWN INDICATION
     Dosage: UNK
     Route: 065
     Dates: start: 20020927
  28. NYSTATIN. [Suspect]
     Active Substance: NYSTATIN
     Indication: ORAL CANDIDIASIS
     Dosage: 12 ML, QD
     Route: 065
     Dates: start: 20020927, end: 20021009
  29. ALUMINIUM HYDROXIDE [Concomitant]
     Active Substance: ALUMINUM HYDROXIDE
     Indication: PRODUCT USED FOR UNKNOWN INDICATION
     Dosage: UNK
     Route: 048
     Dates: start: 20020927, end: 20021106
  30. RABEPRAZOLE [Concomitant]
     Active Substance: RABEPRAZOLE
     Indication: PRODUCT USED FOR UNKNOWN INDICATION
     Dosage: UNK
     Route: 065
     Dates: start: 20020929
  31. INSULIN [Concomitant]
     Active Substance: INSULIN NOS
     Indication: PRODUCT USED FOR UNKNOWN INDICATION
     Dosage: UNK
     Route: 065
     Dates: start: 20021106
  32. DIAZEMULS [Suspect]
     Active Substance: DIAZEPAM
     Indication: AGITATION
     Dosage: UNK, QD
     Route: 065
     Dates: start: 20021009, end: 20021106
  33. HALOPERIDOL. [Suspect]
     Active Substance: HALOPERIDOL
     Indication: HALLUCINATION
  34. CANRENOATE DE POTASSIUM [Suspect]
     Active Substance: CANRENOATE POTASSIUM
     Indication: AGITATION
     Dosage: UNK
     Route: 048
     Dates: start: 20021027
  35. CALCIUM GLUCONATE. [Suspect]
     Active Substance: CALCIUM GLUCONATE
     Dosage: UNK
     Route: 065
     Dates: start: 20021009
  36. GENTAMICIN. [Concomitant]
     Active Substance: GENTAMICIN
     Indication: PRODUCT USED FOR UNKNOWN INDICATION
     Dosage: UNK
     Route: 061
     Dates: start: 20021106
  37. RANITIDINE. [Concomitant]
     Active Substance: RANITIDINE
     Indication: PRODUCT USED FOR UNKNOWN INDICATION
     Dosage: UNK
     Route: 042
     Dates: start: 20021103
  38. PANTOPRAZOLE [Suspect]
     Active Substance: PANTOPRAZOLE
     Indication: PROPHYLAXIS
     Dosage: UNK
     Route: 048
     Dates: start: 20021009
  39. FUROSEMIDE. [Suspect]
     Active Substance: FUROSEMIDE
     Indication: RENAL IMPAIRMENT
     Dosage: UNK
     Route: 048
     Dates: start: 20021004, end: 20021015
  40. DIAZEPAM. [Suspect]
     Active Substance: DIAZEPAM
     Indication: AGITATION
     Dosage: UNK UNK, QD
     Route: 065
     Dates: start: 20021009, end: 20021106
  41. ITRACONAZOLE. [Suspect]
     Active Substance: ITRACONAZOLE
     Indication: ORAL CANDIDIASIS
     Dosage: 100 MILLIGRAM
     Route: 065
     Dates: start: 20021009, end: 20021106
  42. CEFACLOR. [Suspect]
     Active Substance: CEFACLOR
     Indication: ORAL CANDIDIASIS
     Dosage: UNK
     Route: 065
  43. HYDROCORTISONE HEMISUCCINATE [Concomitant]
     Active Substance: HYDROCORTISONE HEMISUCCINATE
     Indication: PRODUCT USED FOR UNKNOWN INDICATION
     Dosage: 200 MILLIGRAM
     Route: 042
     Dates: start: 20021103, end: 20021106

REACTIONS (20)
  - Rash [Fatal]
  - Rash erythematous [Fatal]
  - Septic shock [Fatal]
  - Vitiligo [Unknown]
  - Cystitis [Unknown]
  - Endocrine disorder [Unknown]
  - Skin exfoliation [Fatal]
  - Staphylococcal sepsis [Fatal]
  - Polyglandular disorder [Unknown]
  - Toxic epidermal necrolysis [Fatal]
  - Pyrexia [Fatal]
  - Skin lesion [Fatal]
  - Hypoparathyroidism [Unknown]
  - Anaemia folate deficiency [Unknown]
  - Blister [Fatal]
  - Mouth ulceration [Fatal]
  - Skin infection [Fatal]
  - Chronic hepatitis [Unknown]
  - Rash macular [Fatal]
  - Candida infection [Unknown]

NARRATIVE: CASE EVENT DATE: 20021101
